FAERS Safety Report 12450404 (Version 2)
Quarter: 2016Q3

REPORT INFORMATION
  Report Type: Spontaneous
  Country: US (occurrence: US)
  Receive Date: 20160609
  Receipt Date: 20160916
  Transmission Date: 20161109
  Serious: Yes (Other)
  Sender: FDA-Public Use
  Company Number: US-TEVA-666861ACC

PATIENT
  Age: 33 Year
  Sex: Female
  Weight: 70.82 kg

DRUGS (4)
  1. KEPPRA [Concomitant]
     Active Substance: LEVETIRACETAM
  2. DORYX [Concomitant]
     Active Substance: DOXYCYCLINE HYCLATE
  3. IRON [Concomitant]
     Active Substance: IRON
     Indication: IRON DEFICIENCY
  4. PARAGARD T 380A [Suspect]
     Active Substance: COPPER
     Indication: CONTRACEPTION
     Dates: start: 20160421

REACTIONS (2)
  - Allergy to metals [Recovered/Resolved]
  - Device dislocation [Not Recovered/Not Resolved]

NARRATIVE: CASE EVENT DATE: 20160421
